FAERS Safety Report 26183436 (Version 1)
Quarter: 2025Q4

REPORT INFORMATION
  Report Type: Spontaneous
  Country: US (occurrence: US)
  Receive Date: 20251221
  Receipt Date: 20251221
  Transmission Date: 20260117
  Serious: No
  Sender: ACCORD
  Company Number: US-COHERUS BIOSCIENCES, INC-2025-COH-US000120

PATIENT
  Age: 49 Year
  Sex: Female

DRUGS (6)
  1. UDENYCA [Suspect]
     Active Substance: PEGFILGRASTIM-CBQV
     Indication: Breast cancer stage III
     Dosage: 6 MG/0.6 ML
     Route: 058
     Dates: start: 20250214
  2. UDENYCA [Suspect]
     Active Substance: PEGFILGRASTIM-CBQV
     Indication: Breast cancer stage III
     Dosage: 6 MG/0.6 ML
     Route: 058
     Dates: start: 20250214
  3. PERJETA [Concomitant]
     Active Substance: PERTUZUMAB
     Dosage: UNK
  4. TRASTUZUMAB [Concomitant]
     Active Substance: TRASTUZUMAB
     Dosage: UNK
  5. TAXOTERE [Concomitant]
     Active Substance: DOCETAXEL
     Dosage: UNK
  6. CARBOPLATIN [Concomitant]
     Active Substance: CARBOPLATIN
     Dosage: UNK

REACTIONS (3)
  - Treatment noncompliance [Recovered/Resolved]
  - Wrong technique in product usage process [Recovered/Resolved]
  - Overdose [Recovered/Resolved]

NARRATIVE: CASE EVENT DATE: 20250214
